FAERS Safety Report 7328867-8 (Version None)
Quarter: 2011Q1

REPORT INFORMATION
  Report Type: 
  Country: None (occurrence: None)
  Receive Date: 20110303
  Receipt Date: 20110222
  Transmission Date: 20110831
  Serious: Yes (Hospitalization)
  Sender: FDA-Public Use
  Company Number: US-ASTRAZENECA-2011SE09904

PATIENT
  Age: 55 Year
  Sex: Male
  Weight: 79.4 kg

DRUGS (3)
  1. SEROQUEL [Suspect]
     Indication: BIPOLAR DISORDER
     Route: 048
  2. SEROQUEL [Suspect]
     Route: 048
  3. LEXAPRO [Concomitant]

REACTIONS (2)
  - DRUG DOSE OMISSION [None]
  - BIPOLAR DISORDER [None]
